FAERS Safety Report 8524401 (Version 2)
Quarter: 2012Q4

REPORT INFORMATION
  Report Type: Spontaneous
  Country: US (occurrence: None)
  Receive Date: 20120416
  Receipt Date: 20120824
  Transmission Date: 20130627
  Serious: Yes (Hospitalization, Other)
  Sender: FDA-Public Use
  Company Number: 2012HGS-003491

PATIENT
  Age: 44 Year
  Sex: Female
  Weight: 117.48 kg

DRUGS (11)
  1. BENLYSTA [Suspect]
     Indication: SYSTEMIC LUPUS ERYTHEMATOSUS
     Dosage: 1 IN 28 D, INTRAVENOUS (NOT OTHERWISE SPECIFIED)
     Dates: start: 20110831, end: 20110914
  2. PLAQUENIL [Concomitant]
  3. PREDNISONE [Concomitant]
  4. COUMADIN [Concomitant]
  5. METHOTREXATE [Concomitant]
  6. COZAAR [Concomitant]
  7. FOLIC ACID [Concomitant]
  8. JANUVIA (SITAGLIPTIN PHOSPHATE) (SITAGLIPTIN PHOSPHATE) [Concomitant]
  9. METFORMIN HYDROCHLORIDE [Concomitant]
  10. CRESTOR [Concomitant]
  11. COLCHICINE [Concomitant]

REACTIONS (10)
  - Long QT syndrome [None]
  - Carotid artery disease [None]
  - Palpitations [None]
  - Arterial rupture [None]
  - Carotid arteriosclerosis [None]
  - Pneumonia [None]
  - Localised infection [None]
  - Haemorrhage [None]
  - Impaired healing [None]
  - Syncope [None]
